FAERS Safety Report 7562749-1 (Version None)
Quarter: 2011Q2

REPORT INFORMATION
  Report Type: 
  Country: None (occurrence: None)
  Receive Date: 20110622
  Receipt Date: 20110620
  Transmission Date: 20111010
  Serious: Yes (Other)
  Sender: FDA-Public Use
  Company Number: CN-PFIZER INC-2011134848

PATIENT
  Age: 46 Year
  Sex: Male

DRUGS (2)
  1. ZOLOFT [Suspect]
     Indication: INSOMNIA
     Dosage: ONE TABLET ONLY
     Route: 048
     Dates: start: 20110619, end: 20110620
  2. ZOLOFT [Suspect]
     Indication: ANXIETY

REACTIONS (3)
  - DYSPHORIA [None]
  - NAUSEA [None]
  - DIZZINESS [None]
